FAERS Safety Report 25370783 (Version 2)
Quarter: 2025Q3

REPORT INFORMATION
  Report Type: Spontaneous
  Country: EU (occurrence: EU)
  Receive Date: 20250528
  Receipt Date: 20250803
  Transmission Date: 20251020
  Serious: Yes (Hospitalization)
  Sender: ALEXION PHARMACEUTICALS
  Company Number: None

PATIENT
  Age: 61 Year
  Sex: Male
  Weight: 96 kg

DRUGS (5)
  1. DAPAGLIFLOZIN [Suspect]
     Active Substance: DAPAGLIFLOZIN
     Indication: Type 2 diabetes mellitus
     Dates: start: 202502, end: 202502
  2. METFORMIN [Concomitant]
     Active Substance: METFORMIN HYDROCHLORIDE
     Indication: Type 2 diabetes mellitus
     Route: 065
  3. ATORVASTATIN CALCIUM [Concomitant]
     Active Substance: ATORVASTATIN CALCIUM
     Indication: Hypercholesterolaemia
     Route: 065
  4. COZAAR [Concomitant]
     Active Substance: LOSARTAN POTASSIUM
     Indication: Hypertension
     Route: 065
  5. Hjertemagnyl [Concomitant]
     Indication: Thrombosis prophylaxis
     Route: 065

REACTIONS (15)
  - Arthralgia [Unknown]
  - Hot flush [Unknown]
  - Mood swings [Unknown]
  - Sleep deficit [Unknown]
  - Hunger [Unknown]
  - Headache [Unknown]
  - Urine odour abnormal [Unknown]
  - Blood test abnormal [Recovered/Resolved]
  - Chromaturia [Recovered/Resolved]
  - Paraesthesia [Unknown]
  - Myalgia [Unknown]
  - Urinary incontinence [Unknown]
  - Infection [Recovered/Resolved]
  - Testicular pain [Unknown]
  - Therapy change [Unknown]

NARRATIVE: CASE EVENT DATE: 20250201
